FAERS Safety Report 22590451 (Version 1)
Quarter: 2023Q2

REPORT INFORMATION
  Report Type: Other
  Country: None (occurrence: ID)
  Receive Date: 20230612
  Receipt Date: 20230612
  Transmission Date: 20230722
  Serious: Yes (Hospitalization)
  Sender: FDA-Public Use
  Company Number: ID-B.Braun Medical Inc.-2142597

PATIENT
  Age: 35 Year
  Sex: Female

DRUGS (5)
  1. MEROPENEM\SODIUM CHLORIDE [Suspect]
     Active Substance: MEROPENEM\SODIUM CHLORIDE
     Indication: Infection
  2. RIFAMPIN [Suspect]
     Active Substance: RIFAMPIN
  3. ISONIAZID [Suspect]
     Active Substance: ISONIAZID
  4. ETHAMBUTOL [Suspect]
     Active Substance: ETHAMBUTOL HYDROCHLORIDE
  5. DEXAMETHASONE [Suspect]
     Active Substance: DEXAMETHASONE

REACTIONS (5)
  - Drug ineffective for unapproved indication [Unknown]
  - Foetal distress syndrome [Unknown]
  - Premature delivery [Unknown]
  - Maternal exposure during pregnancy [Unknown]
  - Foetal exposure during pregnancy [Unknown]
